FAERS Safety Report 4693658-3 (Version None)
Quarter: 2005Q2

REPORT INFORMATION
  Report Type: 
  Country: None (occurrence: None)
  Receive Date: 20050617
  Receipt Date: 20050512
  Transmission Date: 20051028
  Serious: Yes (Hospitalization)
  Sender: FDA-Public Use
  Company Number: 2005GB00937

PATIENT
  Age: 23059 Day
  Sex: Female

DRUGS (4)
  1. NOLVADEX [Suspect]
     Indication: BREAST CANCER
     Route: 048
     Dates: start: 19980323, end: 20030325
  2. LOSEC [Concomitant]
     Indication: GASTRODUODENITIS
     Dates: start: 20001105
  3. SEROXAT [Concomitant]
     Indication: DEPRESSION
     Dates: start: 20001128
  4. ELAVIL [Concomitant]
     Indication: DEPRESSION
     Dates: start: 20001128

REACTIONS (2)
  - FALL [None]
  - WRIST FRACTURE [None]
